FAERS Safety Report 24232357 (Version 1)
Quarter: 2024Q3

REPORT INFORMATION
  Report Type: Spontaneous
  Country: GB (occurrence: None)
  Receive Date: 20240821
  Receipt Date: 20240821
  Transmission Date: 20241017
  Serious: Yes (Hospitalization, Disabling)
  Sender: ASTRAZENECA
  Company Number: 2024A185087

PATIENT

DRUGS (1)
  1. DAPAGLIFLOZIN [Suspect]
     Active Substance: DAPAGLIFLOZIN
     Route: 048

REACTIONS (8)
  - Femur fracture [Unknown]
  - Fall [Unknown]
  - Gait inability [Unknown]
  - Middle insomnia [Unknown]
  - Bradykinesia [Unknown]
  - Urinary incontinence [Unknown]
  - Sleep deficit [Unknown]
  - Nocturia [Unknown]
